FAERS Safety Report 9254577 (Version 1)
Quarter: 2013Q2

REPORT INFORMATION
  Report Type: Spontaneous
  Country: NZ (occurrence: NZ)
  Receive Date: 20130425
  Receipt Date: 20130425
  Transmission Date: 20140414
  Serious: Yes (Hospitalization)
  Sender: FDA-Public Use
  Company Number: NZ-PFIZER INC-2013124216

PATIENT
  Age: 73 Year
  Sex: Male

DRUGS (3)
  1. AVIGRA [Suspect]
     Dosage: 100 MG, 8 TABLETS
     Dates: start: 201302
  2. ACETYLSALICYLIC ACID [Concomitant]
     Dosage: 100 MG, UNK
  3. ATORVASTATIN [Concomitant]
     Dosage: 10 MG, UNK

REACTIONS (1)
  - Cerebral infarction [Unknown]
